FAERS Safety Report 5902953-9 (Version None)
Quarter: 2008Q3

REPORT INFORMATION
  Report Type: 
  Country: None (occurrence: None)
  Receive Date: 20080929
  Receipt Date: 20080929
  Transmission Date: 20090109
  Serious: Yes (Hospitalization)
  Sender: FDA-Public Use
  Company Number: None

PATIENT
  Age: 40 Year
  Sex: Male

DRUGS (1)
  1. ACTIVASE [Suspect]
     Dates: start: 20080925, end: 20080925

REACTIONS (1)
  - HAEMORRHAGE [None]
